FAERS Safety Report 9676671 (Version 1)
Quarter: 2013Q4

REPORT INFORMATION
  Report Type: Spontaneous
  Country: GB (occurrence: GB)
  Receive Date: 20131107
  Receipt Date: 20131107
  Transmission Date: 20140711
  Serious: Yes (Disabling)
  Sender: FDA-Public Use
  Company Number: GB-MYLANLABS-2013S1024276

PATIENT
  Age: 85 Year
  Sex: Male
  Weight: 73 kg

DRUGS (10)
  1. METFORMIN [Suspect]
     Indication: TYPE 2 DIABETES MELLITUS
     Dosage: 500 (UNSPECIFIED UNITS) 2 TABLETS IN MORNING, ONE TABLET IN MID DAY AND 2 TABLETS IN NIGHT
     Route: 048
     Dates: start: 2002
  2. BENDROFLUMETHIAZIDE [Concomitant]
     Indication: HYPERTENSION
  3. BISOPROLOL [Concomitant]
     Indication: BLOOD PRESSURE INCREASED
  4. CANDESARTAN [Concomitant]
     Indication: HYPERTENSION
  5. MOVICOL [Concomitant]
     Indication: CONSTIPATION
  6. VITAMIN B12 [Concomitant]
     Indication: VITAMIN B12 DEFICIENCY
     Dosage: EVERY 3 MONTHS
  7. WARFARIN [Concomitant]
     Indication: ATRIAL FIBRILLATION
  8. WARFARIN [Concomitant]
     Indication: PRODUCT USED FOR UNKNOWN INDICATION
  9. WARFARIN [Concomitant]
     Indication: PRODUCT USED FOR UNKNOWN INDICATION
  10. CANDESARTAN [Concomitant]
     Indication: PRODUCT USED FOR UNKNOWN INDICATION

REACTIONS (2)
  - Gait disturbance [Not Recovered/Not Resolved]
  - Blood creatinine increased [Unknown]
